FAERS Safety Report 14341653 (Version 2)
Quarter: 2018Q1

REPORT INFORMATION
  Report Type: Spontaneous
  Country: JP (occurrence: JP)
  Receive Date: 20180102
  Receipt Date: 20180117
  Transmission Date: 20180509
  Serious: Yes (Other)
  Sender: FDA-Public Use
  Company Number: JP-ASTELLAS-2017JP020455AA

PATIENT
  Age: 82 Year
  Sex: Male
  Weight: 50 kg

DRUGS (11)
  1. ASPARA-CA [Concomitant]
     Active Substance: CALCIUM ASPARTATE
     Indication: HYPOCALCAEMIA
     Route: 048
     Dates: start: 20110901
  2. BIOFERMIN                          /07958301/ [Concomitant]
     Indication: DIARRHOEA
     Route: 048
     Dates: start: 20130606
  3. GLACTIV [Concomitant]
     Active Substance: SITAGLIPTIN
     Indication: DIABETES MELLITUS
     Route: 065
  4. LEUPLIN [Concomitant]
     Active Substance: LEUPROLIDE ACETATE
     Indication: METASTASES TO BONE
     Dosage: 11.25 MG/3 MONTHS
     Route: 058
     Dates: start: 20160331
  5. LEUPLIN [Concomitant]
     Active Substance: LEUPROLIDE ACETATE
     Indication: HORMONE-REFRACTORY PROSTATE CANCER
  6. ALFAROL [Concomitant]
     Active Substance: ALFACALCIDOL
     Indication: HYPOCALCAEMIA
     Dosage: 0.5 ?G, ONCE DAILY
     Route: 048
     Dates: start: 20110901
  7. XTANDI [Suspect]
     Active Substance: ENZALUTAMIDE
     Indication: HORMONE-REFRACTORY PROSTATE CANCER
     Route: 048
     Dates: start: 20170302, end: 20170412
  8. XTANDI [Suspect]
     Active Substance: ENZALUTAMIDE
     Route: 048
     Dates: start: 20170413, end: 20170621
  9. XTANDI [Suspect]
     Active Substance: ENZALUTAMIDE
     Route: 048
     Dates: start: 20170622
  10. HARNAL [Concomitant]
     Active Substance: TAMSULOSIN HYDROCHLORIDE
     Indication: BENIGN PROSTATIC HYPERPLASIA
     Dosage: 0.2 MG, ONCE DAILY
     Route: 048
     Dates: start: 20101225
  11. LEUPLIN [Concomitant]
     Active Substance: LEUPROLIDE ACETATE
     Indication: PROSTATE CANCER
     Dosage: 11.25 MG/3 MONTHS
     Route: 058
     Dates: start: 20110707, end: 20120105

REACTIONS (3)
  - Glycosylated haemoglobin increased [Recovered/Resolved]
  - Hyperglycaemia [Recovered/Resolved]
  - Intentional underdose [Unknown]

NARRATIVE: CASE EVENT DATE: 20170302
